FAERS Safety Report 18599686 (Version 4)
Quarter: 2020Q4

REPORT INFORMATION
  Report Type: Report from Study
  Country: IL (occurrence: IL)
  Receive Date: 20201210
  Receipt Date: 20201221
  Transmission Date: 20210114
  Serious: Yes (Hospitalization)
  Sender: FDA-Public Use
  Company Number: IL-EISAI MEDICAL RESEARCH-EC-2020-084997

PATIENT
  Age: 67 Year
  Sex: Female
  Weight: 71.8 kg

DRUGS (7)
  1. PEMBROLIZUMAB. [Suspect]
     Active Substance: PEMBROLIZUMAB
     Indication: BILE DUCT CANCER
     Route: 041
     Dates: start: 20201122, end: 20201122
  2. DIPYRONE [Concomitant]
     Active Substance: DIPYRONE
     Dates: start: 202010, end: 20201207
  3. DESLORATADINE. [Concomitant]
     Active Substance: DESLORATADINE
     Dates: start: 20201129, end: 20201206
  4. ESTRIOL [Concomitant]
     Active Substance: ESTRIOL
     Dates: start: 20201129, end: 20201129
  5. LENVATINIB [Suspect]
     Active Substance: LENVATINIB
     Indication: BILE DUCT CANCER
     Route: 048
     Dates: start: 20201122, end: 20201205
  6. TRAMADOL HYDROCHLORIDE. [Concomitant]
     Active Substance: TRAMADOL HYDROCHLORIDE
     Dates: start: 202010
  7. PEMBROLIZUMAB. [Suspect]
     Active Substance: PEMBROLIZUMAB
     Route: 041
     Dates: start: 20201213

REACTIONS (1)
  - Platelet count decreased [Recovered/Resolved]

NARRATIVE: CASE EVENT DATE: 20201206
